FAERS Safety Report 20954814 (Version 1)
Quarter: 2022Q2

REPORT INFORMATION
  Report Type: Spontaneous
  Country: US (occurrence: US)
  Receive Date: 20220614
  Receipt Date: 20220614
  Transmission Date: 20220721
  Serious: No
  Sender: FDA-Public Use
  Company Number: US-TEVA-2022-US-2041447

PATIENT
  Sex: Female
  Weight: 76.6 kg

DRUGS (7)
  1. HYDROCHLOROTHIAZIDE [Suspect]
     Active Substance: HYDROCHLOROTHIAZIDE
     Dates: start: 20220429
  2. LENVIMA [Suspect]
     Active Substance: LENVATINIB
     Indication: Endometrial cancer
     Dosage: 10MG/20MG, TAKE 1 CAPSULE (10MG} DALLY FOR 7 DAYS THEN INCREASE TO 2 CAPSULES (20MG} DAILY
     Route: 048
     Dates: start: 20220311
  3. ZINC [Concomitant]
     Active Substance: ZINC
  4. VITAMIN D2 [Concomitant]
     Active Substance: ERGOCALCIFEROL
  5. VITAMIN B12 [Concomitant]
     Active Substance: CYANOCOBALAMIN
  6. DIAZEPAM [Concomitant]
     Active Substance: DIAZEPAM
  7. LISINOPRIL [Concomitant]
     Active Substance: LISINOPRIL

REACTIONS (10)
  - Blood pressure increased [Unknown]
  - Heart rate increased [Unknown]
  - Flushing [Unknown]
  - Asthenia [Unknown]
  - Decreased appetite [Unknown]
  - Dry mouth [Unknown]
  - Oral pain [Unknown]
  - Abdominal discomfort [Unknown]
  - Nausea [Unknown]
  - Blood glucose abnormal [Unknown]

NARRATIVE: CASE EVENT DATE: 20220101
